FAERS Safety Report 13245495 (Version 3)
Quarter: 2017Q1

REPORT INFORMATION
  Report Type: Report from Study
  Country: GB (occurrence: GB)
  Receive Date: 20170217
  Receipt Date: 20170317
  Transmission Date: 20170428
  Serious: Yes (Hospitalization)
  Sender: FDA-Public Use
  Company Number: GB-ROCHE-1893372

PATIENT
  Age: 48 Year
  Sex: Female
  Weight: 96 kg

DRUGS (13)
  1. MAGNESIUM ASPARTATE [Concomitant]
     Active Substance: MAGNESIUM ASPARTATE
     Indication: HYPOMAGNESAEMIA
     Route: 048
     Dates: start: 20170125, end: 20170205
  2. COBIMETINIB [Suspect]
     Active Substance: COBIMETINIB
     Indication: COLORECTAL ADENOCARCINOMA
     Dosage: DATE OF MOST RECENT DOSE: 10/FEB/2017
     Route: 048
     Dates: start: 20170125
  3. OMEPRAZOLE. [Concomitant]
     Active Substance: OMEPRAZOLE
     Indication: PROPHYLAXIS
     Route: 048
  4. ATEZOLIZUMAB [Suspect]
     Active Substance: ATEZOLIZUMAB
     Indication: COLORECTAL ADENOCARCINOMA
     Dosage: DATE OF MOST RECENT DOSE: 08/FEB/2017 AT 11:45
     Route: 042
     Dates: start: 20170125
  5. PARACETAMOL [Concomitant]
     Active Substance: ACETAMINOPHEN
     Indication: ABDOMINAL PAIN
     Route: 048
  6. CODEINE PHOSPHATE [Concomitant]
     Active Substance: CODEINE PHOSPHATE
     Indication: ABDOMINAL PAIN
     Route: 048
  7. CODEINE PHOSPHATE [Concomitant]
     Active Substance: CODEINE PHOSPHATE
     Indication: DIARRHOEA
  8. SANDO-K [Concomitant]
     Active Substance: POTASSIUM BICARBONATE\POTASSIUM CHLORIDE
     Indication: HYPOKALAEMIA
     Dosage: POTASSIUM CHLORIDE 600 MG/ POTASSIUM BICARB 400 MG
     Route: 048
     Dates: start: 20170125, end: 20170128
  9. NYSTATIN. [Concomitant]
     Active Substance: NYSTATIN
     Indication: ORAL CANDIDIASIS
     Route: 048
     Dates: start: 20170207
  10. ONDANSETRON [Concomitant]
     Active Substance: ONDANSETRON
     Indication: NAUSEA
     Route: 048
     Dates: start: 20170207
  11. ONDANSETRON [Concomitant]
     Active Substance: ONDANSETRON
     Indication: VOMITING
  12. GABAPENTIN. [Concomitant]
     Active Substance: GABAPENTIN
     Indication: ABDOMINAL PAIN
     Route: 048
  13. COBIMETINIB [Suspect]
     Active Substance: COBIMETINIB
     Route: 048

REACTIONS (2)
  - Fatigue [Recovering/Resolving]
  - Diarrhoea [Recovered/Resolved]

NARRATIVE: CASE EVENT DATE: 20170128
